FAERS Safety Report 19928254 (Version 1)
Quarter: 2021Q4

REPORT INFORMATION
  Report Type: Report from Study
  Country: AU (occurrence: AU)
  Receive Date: 20211007
  Receipt Date: 20211007
  Transmission Date: 20220303
  Serious: Yes (Hospitalization)
  Sender: FDA-Public Use
  Company Number: AU-HTU-2021AU023421

PATIENT
  Age: 69 Year
  Sex: Female
  Weight: 93.8 kg

DRUGS (25)
  1. INFIGRATINIB [Suspect]
     Active Substance: INFIGRATINIB
     Indication: Cholangiocarcinoma
     Dosage: 125 MILLIGRAM, QD
     Route: 048
     Dates: start: 20210217, end: 20210309
  2. INFIGRATINIB [Suspect]
     Active Substance: INFIGRATINIB
     Dosage: 125 MILLIGRAM, QD
     Route: 048
     Dates: start: 20210317, end: 20210327
  3. INFIGRATINIB [Suspect]
     Active Substance: INFIGRATINIB
     Dosage: 100 MILLIGRAM, QD
     Route: 048
     Dates: start: 20210414, end: 20210504
  4. INFIGRATINIB [Suspect]
     Active Substance: INFIGRATINIB
     Dosage: 100 MILLIGRAM, QD
     Route: 048
     Dates: start: 20210512, end: 20210601
  5. INFIGRATINIB [Suspect]
     Active Substance: INFIGRATINIB
     Dosage: 100 MILLIGRAM, QD
     Route: 048
     Dates: start: 20210609, end: 20210611
  6. INFIGRATINIB [Suspect]
     Active Substance: INFIGRATINIB
     Dosage: 75 MILLIGRAM, QD
     Route: 048
     Dates: start: 20210628, end: 20210629
  7. INFIGRATINIB [Suspect]
     Active Substance: INFIGRATINIB
     Dosage: 75 MILLIGRAM, QD
     Route: 048
     Dates: start: 20210707, end: 20210727
  8. INFIGRATINIB [Suspect]
     Active Substance: INFIGRATINIB
     Dosage: 75 MILLIGRAM, QD
     Route: 048
     Dates: start: 20210804, end: 20210824
  9. EMPAGLIFLOZIN\LINAGLIPTIN [Concomitant]
     Active Substance: EMPAGLIFLOZIN\LINAGLIPTIN
     Indication: Blood glucose abnormal
     Dosage: 25/5 MILLIGRAM, QAM
     Route: 048
     Dates: start: 2019
  10. AMITRIPTYLINE [Concomitant]
     Active Substance: AMITRIPTYLINE
     Indication: Anxiety
     Dosage: 50 MILLIGRAM, QHS
     Route: 048
     Dates: start: 201910
  11. AMITRIPTYLINE [Concomitant]
     Active Substance: AMITRIPTYLINE
     Indication: Depression
  12. AMLODIPINE [Concomitant]
     Active Substance: AMLODIPINE BESYLATE
     Indication: Hypertension
     Dosage: 5 MILLIGRAM, QAM
     Route: 048
     Dates: start: 202010
  13. APIXABAN [Concomitant]
     Active Substance: APIXABAN
     Indication: Prophylaxis
     Dosage: 5 MILLIGRAM, BID
     Route: 048
     Dates: start: 2018
  14. ENALAPRIL [Concomitant]
     Active Substance: ENALAPRIL
     Indication: Hypertension
     Dosage: 20 MILLIGRAM, QAM
     Route: 048
     Dates: start: 2002
  15. ESOMEPRAZOLE. [Concomitant]
     Active Substance: ESOMEPRAZOLE MAGNESIUM
     Indication: Gastrooesophageal reflux disease
     Dosage: 40 MILLIGRAM, QD, EVENING
     Route: 048
     Dates: start: 20210225
  16. GABAPENTIN [Concomitant]
     Active Substance: GABAPENTIN
     Indication: Restless legs syndrome
     Dosage: 600 MILLIGRAM, QHS
     Route: 048
     Dates: start: 201910
  17. LOPERAMIDE [Concomitant]
     Active Substance: LOPERAMIDE
     Indication: Diarrhoea
     Dosage: 2 MILLIGRAM, INFREQUENT
     Route: 048
     Dates: start: 20210303, end: 20210305
  18. LOPERAMIDE [Concomitant]
     Active Substance: LOPERAMIDE
     Dosage: 2 MILLIGRAM, INFREQUENT
     Route: 048
     Dates: start: 20210323, end: 20210327
  19. MAGNESIUM [Concomitant]
     Active Substance: MAGNESIUM
     Indication: Supplementation therapy
     Dosage: 500 MILLIGRAM, QAM
     Route: 048
     Dates: start: 2002
  20. METFORMIN [Concomitant]
     Active Substance: METFORMIN HYDROCHLORIDE
     Indication: Blood glucose abnormal
     Dosage: 2000 MILLIGRAM, QD
     Route: 048
     Dates: start: 2018
  21. OSTEOMOL 665 PARACETAMOL [Concomitant]
     Indication: Arthralgia
     Dosage: 665 MILLIGRAM, BID
     Route: 048
     Dates: start: 2018
  22. ROSUVASTATIN [Concomitant]
     Active Substance: ROSUVASTATIN
     Indication: Blood cholesterol increased
     Dosage: 5 MILLIGRAM, QHS
     Route: 048
     Dates: start: 2018
  23. SEVELAMER [Concomitant]
     Active Substance: SEVELAMER
     Indication: Blood phosphorus
     Dosage: 1600 MILLIGRAM, TID
     Route: 048
     Dates: start: 20210310, end: 20210315
  24. SEVELAMER [Concomitant]
     Active Substance: SEVELAMER
     Indication: Prophylaxis
     Dosage: 800 MILLIGRAM, TID
     Route: 048
     Dates: start: 20210327, end: 20210401
  25. THYROXINE [Concomitant]
     Active Substance: LEVOTHYROXINE
     Dosage: 50 MICROGRAM, QD
     Route: 048
     Dates: start: 2018

REACTIONS (1)
  - Eye pain [Recovered/Resolved]

NARRATIVE: CASE EVENT DATE: 20210329
